FAERS Safety Report 10248011 (Version 3)
Quarter: 2014Q3

REPORT INFORMATION
  Report Type: Report from Study
  Country: MX (occurrence: MX)
  Receive Date: 20140619
  Receipt Date: 20140718
  Transmission Date: 20150326
  Serious: Yes (Other)
  Sender: FDA-Public Use
  Company Number: PHHY2009MX33822

PATIENT
  Age: 57 Year
  Sex: Female

DRUGS (7)
  1. TEGRETOL-XR [Suspect]
     Active Substance: CARBAMAZEPINE
     Dosage: 3 DF, DAILY
     Route: 048
  2. TEGRETOL-XR [Suspect]
     Active Substance: CARBAMAZEPINE
     Dosage: 3 DF, DAILY
     Route: 048
  3. CARBAMAZEPINE. [Suspect]
     Active Substance: CARBAMAZEPINE
     Dosage: UNK UKN, UNK
  4. EQUILID [Concomitant]
     Active Substance: SULPIRIDE
     Dosage: 2 DF, DAILY
     Route: 048
  5. CLONAZEPAM. [Concomitant]
     Active Substance: CLONAZEPAM
     Dosage: 1 DF, DAILY
  6. TEGRETOL-XR [Suspect]
     Active Substance: CARBAMAZEPINE
     Indication: EPILEPSY
     Dosage: 2 DF, DAILY
     Route: 048
     Dates: start: 196808
  7. TEGRETOL-XR [Suspect]
     Active Substance: CARBAMAZEPINE
     Dosage: 2 DF, DAILY
     Route: 048

REACTIONS (13)
  - Extrasystoles [Not Recovered/Not Resolved]
  - Hypersomnia [Recovered/Resolved]
  - Dizziness [Not Recovered/Not Resolved]
  - Derealisation [Recovered/Resolved]
  - Asthenia [Not Recovered/Not Resolved]
  - Hemiparesis [Recovered/Resolved]
  - Hemiplegia [Recovered/Resolved]
  - Vertigo [Recovered/Resolved]
  - Brain stem infarction [Recovered/Resolved]
  - Clumsiness [Recovered/Resolved]
  - Anxiety [Not Recovered/Not Resolved]
  - Somnolence [Recovered/Resolved]
  - Complex partial seizures [Not Recovered/Not Resolved]

NARRATIVE: CASE EVENT DATE: 20090801
